FAERS Safety Report 12891776 (Version 1)
Quarter: 2016Q4

REPORT INFORMATION
  Report Type: Report from Study
  Country: DE (occurrence: DE)
  Receive Date: 20161028
  Receipt Date: 20161028
  Transmission Date: 20170207
  Serious: Yes (Death, Other)
  Sender: FDA-Public Use
  Company Number: DE-CIPLA LTD.-2016DE20257

PATIENT

DRUGS (3)
  1. DOXORUBICIN [Suspect]
     Active Substance: DOXORUBICIN
     Indication: BREAST CANCER
     Dosage: 20 MG/M2, ONCE A WEEK, FOR 18 WEEKS
     Route: 065
  2. CARBOPLATIN. [Suspect]
     Active Substance: CARBOPLATIN
     Indication: BREAST CANCER
     Dosage: UNK, ONCE EVERY WEEK
     Route: 065
  3. PACLITAXEL. [Suspect]
     Active Substance: PACLITAXEL
     Indication: BREAST CANCER
     Dosage: 80 MG/M2, ONCE A WEEK, FOR 18 WEEKS
     Route: 065

REACTIONS (2)
  - Sepsis [Fatal]
  - Device related infection [Unknown]
